FAERS Safety Report 26102093 (Version 2)
Quarter: 2025Q4

REPORT INFORMATION
  Report Type: Report from Study
  Country: US (occurrence: US)
  Receive Date: 20251128
  Receipt Date: 20251218
  Transmission Date: 20260118
  Serious: Yes (Hospitalization, Other)
  Sender: GILEAD
  Company Number: US-GILEAD-2025-0738218

PATIENT
  Sex: Female

DRUGS (1)
  1. SELADELPAR [Suspect]
     Active Substance: SELADELPAR
     Indication: Product used for unknown indication
     Dosage: 10 MG PO DAILY
     Route: 048

REACTIONS (4)
  - Dysarthria [Unknown]
  - Facial paralysis [Unknown]
  - Diverticulitis [Unknown]
  - Product dose omission issue [Unknown]
